FAERS Safety Report 6105919-1 (Version None)
Quarter: 2009Q1

REPORT INFORMATION
  Report Type: 
  Country: None (occurrence: None)
  Receive Date: 20090227
  Receipt Date: 20081217
  Transmission Date: 20090719
  Serious: Yes (Other)
  Sender: FDA-Public Use
  Company Number: 182602USA

PATIENT
  Sex: Female

DRUGS (1)
  1. PROPOFOL [Suspect]
     Indication: ANAESTHESIA

REACTIONS (1)
  - HEPATITIS C [None]
